FAERS Safety Report 10423285 (Version 2)
Quarter: 2014Q4

REPORT INFORMATION
  Report Type: Spontaneous
  Country: JP (occurrence: JP)
  Receive Date: 20140902
  Receipt Date: 20141010
  Transmission Date: 20150528
  Serious: Yes (Hospitalization)
  Sender: FDA-Public Use
  Company Number: JP-ELI_LILLY_AND_COMPANY-JP201408009749

PATIENT
  Age: 71 Year
  Sex: Female
  Weight: 39 kg

DRUGS (6)
  1. FORTEO [Suspect]
     Active Substance: TERIPARATIDE
     Indication: OSTEOPOROSIS
     Dosage: 20 UG, QD
     Route: 058
     Dates: start: 20120713, end: 20140512
  2. BIOFERMIN                          /00275501/ [Concomitant]
     Active Substance: BACILLUS SUBTILIS\LACTOBACILLUS ACIDOPHILUS\STREPTOCOCCUS FAECAIS
     Dosage: 1 G, TID
     Route: 048
     Dates: start: 201105, end: 20140512
  3. GASTROM [Concomitant]
     Active Substance: ECABET
     Indication: GASTRITIS
     Dosage: 1.5 G, BID
     Route: 048
     Dates: start: 20120907
  4. FEMARA [Concomitant]
     Active Substance: LETROZOLE
     Indication: BREAST CANCER
     Dosage: 1 DF, EACH EVENING
     Route: 048
     Dates: start: 20110928, end: 20140512
  5. PODONIN S [Concomitant]
     Indication: GASTRITIS
     Dosage: 0.5 G, TID
     Route: 048
     Dates: start: 201105
  6. ZOPICLON [Concomitant]
     Active Substance: ZOPICLONE
     Indication: INSOMNIA
     Dosage: 1 DF, QD
     Route: 048
     Dates: start: 20120522

REACTIONS (2)
  - Intestinal obstruction [Recovered/Resolved]
  - Intestinal obstruction [Recovered/Resolved]

NARRATIVE: CASE EVENT DATE: 20140512
